FAERS Safety Report 9629709 (Version 2)
Quarter: 2013Q4

REPORT INFORMATION
  Report Type: Spontaneous
  Country: BE (occurrence: BE)
  Receive Date: 20131017
  Receipt Date: 20131101
  Transmission Date: 20140711
  Serious: Yes (Life-Threatening, Hospitalization, Other)
  Sender: FDA-Public Use
  Company Number: BE-B.I. PHARMACEUTICALS,INC./RIDGEFIELD-2013-BI-32351BL

PATIENT
  Age: 48 Year
  Sex: Male
  Weight: 112 kg

DRUGS (6)
  1. PRADAXA [Suspect]
     Indication: ATRIAL FIBRILLATION
     Dosage: 300 MG
     Dates: start: 20120925
  2. TRITACE [Concomitant]
     Dosage: 10 MG
  3. EMCONCOR MITIS [Concomitant]
     Dosage: 2.5 MG
  4. BURINEX [Concomitant]
     Dosage: 5 MG
  5. SPIRONOLACTONE EG [Concomitant]
     Dosage: 25 MG
  6. CRESTOR [Concomitant]
     Dosage: 20 MG

REACTIONS (16)
  - Syncope [Unknown]
  - Embolism [Unknown]
  - Back pain [Unknown]
  - Nausea [Unknown]
  - Splenic embolism [Recovered/Resolved]
  - Peripheral embolism [Recovered/Resolved]
  - Renal embolism [Recovered/Resolved]
  - Renal infarct [Unknown]
  - Splenic infarction [Unknown]
  - Thrombectomy [Unknown]
  - Renal failure [Unknown]
  - Syncope [Unknown]
  - Peripheral coldness [Unknown]
  - Vomiting [Unknown]
  - Back pain [Unknown]
  - Abdominal pain upper [Unknown]
